FAERS Safety Report 23593017 (Version 2)
Quarter: 2024Q1

REPORT INFORMATION
  Report Type: Spontaneous
  Country: NL (occurrence: NL)
  Receive Date: 20240304
  Receipt Date: 20240306
  Transmission Date: 20240410
  Serious: Yes (Other)
  Sender: FDA-Public Use
  Company Number: NL-ACRAF SpA-2024-033571

PATIENT

DRUGS (8)
  1. XCOPRI [Suspect]
     Active Substance: CENOBAMATE
     Indication: Product used for unknown indication
     Dosage: 100 MILLIGRAM, QD
     Route: 048
     Dates: start: 202310
  2. XCOPRI [Suspect]
     Active Substance: CENOBAMATE
     Dosage: 200 MILLIGRAM, QD
     Route: 048
     Dates: start: 20231223
  3. LANTUS [Concomitant]
     Active Substance: INSULIN GLARGINE
     Indication: Product used for unknown indication
     Dosage: 100E/ML CARTRIDGE 3ML
     Route: 058
  4. IRBESARTAN [Concomitant]
     Active Substance: IRBESARTAN
     Indication: Product used for unknown indication
     Dosage: 150 MG (1 IN 1 D)
     Route: 065
  5. SIMVASTATIN [Concomitant]
     Active Substance: SIMVASTATIN
     Indication: Product used for unknown indication
     Dosage: 10 MG (1 IN 1 D)
     Route: 065
  6. EUTHYROX [Concomitant]
     Active Substance: LEVOTHYROXINE SODIUM
     Indication: Product used for unknown indication
     Dosage: 150 MCG (1 IN 1 D)
     Route: 065
  7. CLOBAZAM [Concomitant]
     Active Substance: CLOBAZAM
     Indication: Product used for unknown indication
     Dosage: 10 MG (1 IN 1 D)
     Route: 048
  8. DEPAKINE                           /00228501/ [Concomitant]
     Indication: Product used for unknown indication
     Dosage: 2 X PER DAY 1 TABLET WILL BE TAPERED BY 250MG EVERY FORTNIGHT (500 MG,2 IN 1D)
     Route: 048

REACTIONS (3)
  - Diabetic metabolic decompensation [Unknown]
  - Fatigue [Unknown]
  - Constipation [Unknown]
